FAERS Safety Report 11039037 (Version 2)
Quarter: 2015Q2

REPORT INFORMATION
  Report Type: Spontaneous
  Country: US (occurrence: US)
  Receive Date: 20150416
  Receipt Date: 20150525
  Transmission Date: 20150821
  Serious: No
  Sender: FDA-Public Use
  Company Number: US-JNJFOC-20140706939

PATIENT
  Sex: Female
  Weight: 57.15 kg

DRUGS (3)
  1. DILTIAZEM [Concomitant]
     Active Substance: DILTIAZEM
     Indication: BLOOD PRESSURE
     Route: 065
  2. XARELTO [Suspect]
     Active Substance: RIVAROXABAN
     Indication: THROMBOSIS
     Route: 048
  3. DILTIAZEM [Concomitant]
     Active Substance: DILTIAZEM
     Indication: HEART RATE
     Route: 065

REACTIONS (3)
  - Incorrect dose administered [Unknown]
  - Contusion [Recovered/Resolved]
  - Wound haemorrhage [Unknown]

NARRATIVE: CASE EVENT DATE: 2014
